FAERS Safety Report 8161954-3 (Version None)
Quarter: 2012Q1

REPORT INFORMATION
  Report Type: 
  Country: None (occurrence: None)
  Receive Date: 20120221
  Receipt Date: 20120206
  Transmission Date: 20120608
  Serious: Yes (Other)
  Sender: FDA-Public Use
  Company Number: 1000028517

PATIENT
  Sex: Male

DRUGS (2)
  1. VIIBRYD [Suspect]
  2. LEXAPRO (ESCITALOPRAM OXALATE) (ESCITALOPRAM OXALATE) [Concomitant]

REACTIONS (1)
  - BLOOD PRESSURE INCREASED [None]
